FAERS Safety Report 8996879 (Version 1)
Quarter: 2012Q4

REPORT INFORMATION
  Report Type: Spontaneous
  Country: US (occurrence: None)
  Receive Date: 20121231
  Receipt Date: 20121231
  Transmission Date: 20130627
  Serious: Yes (Hospitalization)
  Sender: FDA-Public Use
  Company Number: None

PATIENT
  Age: 55 Year
  Sex: Male

DRUGS (1)
  1. LISINOPRIL [Suspect]
     Dosage: 20 MG BID PO
     Route: 048
     Dates: start: 20111004, end: 20120601

REACTIONS (6)
  - Swelling face [None]
  - Lip swelling [None]
  - Tenderness [None]
  - Movement disorder [None]
  - Jaw disorder [None]
  - Angioedema [None]
